FAERS Safety Report 8497199-7 (Version None)
Quarter: 2012Q3

REPORT INFORMATION
  Report Type: 
  Country: None (occurrence: None)
  Receive Date: 20120709
  Receipt Date: 20120606
  Transmission Date: 20120928
  Serious: No
  Sender: FDA-Public Use
  Company Number: US-AMGEN-USASP2012035377

PATIENT
  Sex: Female

DRUGS (3)
  1. METHOTREXATE [Suspect]
     Dosage: UNK
  2. LYRICA [Suspect]
     Dosage: UNK
  3. ENBREL [Suspect]
     Indication: RHEUMATOID ARTHRITIS
     Dosage: 50 MG, QWK

REACTIONS (4)
  - FIBROMYALGIA [None]
  - ARTHRALGIA [None]
  - RASH [None]
  - HEPATIC ENZYME INCREASED [None]
